FAERS Safety Report 7728488-9 (Version None)
Quarter: 2011Q3

REPORT INFORMATION
  Report Type: 
  Country: None (occurrence: None)
  Receive Date: 20110905
  Receipt Date: 20110902
  Transmission Date: 20111222
  Serious: Yes (Death, Other)
  Sender: FDA-Public Use
  Company Number: PHHY2011PH71577

PATIENT
  Sex: Male

DRUGS (2)
  1. GLEEVEC [Suspect]
     Indication: CHRONIC MYELOID LEUKAEMIA
     Dosage: 400 MG/DAY
     Route: 048
     Dates: start: 20060731
  2. GLEEVEC [Suspect]
     Dosage: 600 MG/DAY
     Route: 048

REACTIONS (4)
  - PLATELET COUNT DECREASED [None]
  - DEATH [None]
  - HAEMATOCHEZIA [None]
  - ANAEMIA [None]
